FAERS Safety Report 13538577 (Version 3)
Quarter: 2017Q2

REPORT INFORMATION
  Report Type: Spontaneous
  Country: AU (occurrence: AU)
  Receive Date: 20170511
  Receipt Date: 20170531
  Transmission Date: 20170830
  Serious: Yes (Other)
  Sender: FDA-Public Use
  Company Number: AU-CONCORDIA PHARMACEUTICALS INC.-E2B_00008113

PATIENT
  Age: 7 Year
  Sex: Male
  Weight: 51 kg

DRUGS (4)
  1. PREDNISOLONE. [Suspect]
     Active Substance: PREDNISOLONE
     Dosage: ADDITION OF AN EXTRA TABLET PER DAY
  2. PREDNISOLONE. [Suspect]
     Active Substance: PREDNISOLONE
  3. PREDNISOLONE. [Suspect]
     Active Substance: PREDNISOLONE
  4. PREDNISOLONE. [Suspect]
     Active Substance: PREDNISOLONE
     Dosage: INTERMITTENT COURSES OF CORTICOSTEROIDS

REACTIONS (4)
  - Cushing^s syndrome [Recovering/Resolving]
  - Hypertension [Unknown]
  - Spinal fracture [Unknown]
  - Vitamin D deficiency [Unknown]
